FAERS Safety Report 9352250 (Version 3)
Quarter: 2013Q3

REPORT INFORMATION
  Report Type: Spontaneous
  Country: PL (occurrence: PL)
  Receive Date: 20130617
  Receipt Date: 20130703
  Transmission Date: 20140515
  Serious: Yes (Other)
  Sender: FDA-Public Use
  Company Number: PL-PFIZER INC-2013177564

PATIENT
  Sex: 0

DRUGS (1)
  1. VIAGRA [Suspect]

REACTIONS (2)
  - Product counterfeit [Unknown]
  - Sexual abuse [Unknown]
